FAERS Safety Report 8324598-6 (Version None)
Quarter: 2012Q1

REPORT INFORMATION
  Report Type: 
  Country: None (occurrence: None)
  Receive Date: 20120315
  Receipt Date: 20110331
  Transmission Date: 20120608
  Serious: No
  Sender: FDA-Public Use
  Company Number: PHHY2011US26948

PATIENT
  Sex: Female

DRUGS (2)
  1. GILENYA [Suspect]
     Dosage: 0.5 MG, DAILY, ORAL
     Route: 048
     Dates: start: 20110219
  2. METFORMIN HCL [Suspect]
     Dosage: UNK UKN, UNK

REACTIONS (2)
  - MUSCULAR WEAKNESS [None]
  - EPHELIDES [None]
